FAERS Safety Report 14333825 (Version 1)
Quarter: 2017Q4

REPORT INFORMATION
  Report Type: Spontaneous
  Country: US (occurrence: US)
  Receive Date: 20171227
  Receipt Date: 20171227
  Transmission Date: 20180321
  Serious: No
  Sender: FDA-Public Use
  Company Number: None

PATIENT
  Sex: Male
  Weight: 95.25 kg

DRUGS (5)
  1. FORTEO [Suspect]
     Active Substance: TERIPARATIDE
     Indication: OSTEOPOROSIS
     Route: 058
     Dates: start: 201705
  2. FORTEO [Suspect]
     Active Substance: TERIPARATIDE
     Indication: FLATBACK SYNDROME
     Route: 058
     Dates: start: 201705
  3. FORTEO [Suspect]
     Active Substance: TERIPARATIDE
     Indication: SPINAL PAIN
     Route: 058
     Dates: start: 201705
  4. FORTEO [Suspect]
     Active Substance: TERIPARATIDE
     Indication: BONE DENSITY ABNORMAL
     Route: 058
     Dates: start: 201705
  5. FORTEO [Suspect]
     Active Substance: TERIPARATIDE
     Indication: OSTEOPOROTIC FRACTURE
     Route: 058
     Dates: start: 201705

REACTIONS (1)
  - Spinal operation [None]
